FAERS Safety Report 5634847-0 (Version None)
Quarter: 2008Q1

REPORT INFORMATION
  Report Type: 
  Country: None (occurrence: None)
  Receive Date: 20080221
  Receipt Date: 20080221
  Transmission Date: 20080703
  Serious: No
  Sender: FDA-Public Use
  Company Number: None

PATIENT
  Age: 88 Year
  Sex: Male

DRUGS (1)
  1. VANCOMYCIN [Suspect]
     Indication: PROPHYLAXIS
     Dosage: 1GM ONCE IV
     Route: 042
     Dates: start: 20071217, end: 20071217

REACTIONS (3)
  - ERYTHEMA MULTIFORME [None]
  - FLUSHING [None]
  - HYPERTENSION [None]
